FAERS Safety Report 25004833 (Version 1)
Quarter: 2025Q1

REPORT INFORMATION
  Report Type: Spontaneous
  Country: JP (occurrence: JP)
  Receive Date: 20250224
  Receipt Date: 20250224
  Transmission Date: 20250409
  Serious: Yes (Other)
  Sender: PFIZER
  Company Number: JP-PFIZER INC-202500039549

PATIENT

DRUGS (1)
  1. SOLU-CORTEF [Suspect]
     Active Substance: HYDROCORTISONE SODIUM SUCCINATE

REACTIONS (3)
  - Erythema multiforme [Unknown]
  - Urticaria [Unknown]
  - Hypersensitivity [Unknown]
